FAERS Safety Report 9538439 (Version 2)
Quarter: 2013Q3

REPORT INFORMATION
  Report Type: Spontaneous
  Country: JP (occurrence: JP)
  Receive Date: 20130920
  Receipt Date: 20130920
  Transmission Date: 20140515
  Serious: Yes (Hospitalization)
  Sender: FDA-Public Use
  Company Number: JP-ROCHE-1231677

PATIENT
  Age: 79 Year
  Sex: Female
  Weight: 57 kg

DRUGS (12)
  1. HERCEPTIN [Suspect]
     Indication: BREAST CANCER
     Route: 041
     Dates: start: 20121017, end: 20121017
  2. LAC-B [Concomitant]
     Route: 048
  3. CALBLOCK [Concomitant]
     Route: 048
  4. ALLOPURINOL [Concomitant]
     Route: 048
  5. BROTIZOLAM [Concomitant]
     Route: 048
  6. PLETAAL [Concomitant]
     Route: 048
  7. CO-DIO [Concomitant]
     Route: 048
  8. VOGLIBOSE [Concomitant]
     Route: 048
  9. ATORVASTATIN [Concomitant]
     Route: 048
  10. BAYASPIRIN [Concomitant]
     Route: 048
  11. LASIX [Concomitant]
     Route: 048
  12. PLAVIX [Concomitant]
     Route: 048

REACTIONS (2)
  - Chest pain [Recovered/Resolved]
  - Headache [Recovered/Resolved]
